FAERS Safety Report 14526332 (Version 9)
Quarter: 2018Q2

REPORT INFORMATION
  Report Type: Spontaneous
  Country: CA (occurrence: CA)
  Receive Date: 20180213
  Receipt Date: 20180605
  Transmission Date: 20180711
  Serious: Yes (Other)
  Sender: FDA-Public Use
  Company Number: CA-CELLTRION INC.-2018CA017891

PATIENT

DRUGS (10)
  1. INFLECTRA [Suspect]
     Active Substance: INFLIXIMAB-DYYB
     Indication: COLITIS ULCERATIVE
     Dosage: 300 MG, CYCLIC (EVERY 6 WEEKS, THEN EVERY 8 WEEKS)
     Route: 042
     Dates: start: 20171029
  2. INFLECTRA [Suspect]
     Active Substance: INFLIXIMAB-DYYB
     Dosage: 300 MG, CYCLIC (EVERY 6 WEEKS, THEN EVERY 8 WEEKS)
     Route: 042
     Dates: start: 20171122
  3. PREDNISONE. [Concomitant]
     Active Substance: PREDNISONE
     Dosage: UNK
     Dates: start: 201709
  4. INFLECTRA [Suspect]
     Active Substance: INFLIXIMAB-DYYB
     Dosage: 300 MG, CYCLIC (EVERY 6 WEEKS, THEN EVERY 8 WEEKS)
     Route: 042
     Dates: start: 20171211
  5. AZATHIOPRINE. [Concomitant]
     Active Substance: AZATHIOPRINE
     Indication: PRODUCT USED FOR UNKNOWN INDICATION
     Dosage: 150 MG UNK
     Route: 065
     Dates: start: 201709, end: 201804
  6. INFLECTRA [Suspect]
     Active Substance: INFLIXIMAB-DYYB
     Dosage: 300 MG, CYCLIC (EVERY 6 WEEKS, THEN EVERY 8 WEEKS)
     Route: 042
     Dates: start: 20180207
  7. INFLECTRA [Suspect]
     Active Substance: INFLIXIMAB-DYYB
     Dosage: 5.5 MG/KG, CYCLIC (EVERY 6 WEEKS)
     Route: 042
     Dates: start: 20180404
  8. INFLECTRA [Suspect]
     Active Substance: INFLIXIMAB-DYYB
     Dosage: 335 MG, CYCLIC (EVERY 6 WEEKS, THEN EVERY 8 WEEKS)
     Route: 042
     Dates: start: 20180404
  9. INFLECTRA [Suspect]
     Active Substance: INFLIXIMAB-DYYB
     Dosage: 5 MG/KG, EVERY 7 WEEKS;
     Route: 042
  10. PENTASA [Concomitant]
     Active Substance: MESALAMINE
     Dosage: 4 G, DAILY
     Dates: start: 201709

REACTIONS (8)
  - Drug ineffective [Unknown]
  - Weight increased [Unknown]
  - Haemorrhage [Not Recovered/Not Resolved]
  - Product use issue [Unknown]
  - Incorrect dose administered [Unknown]
  - Product use issue [Unknown]
  - Drug level below therapeutic [Unknown]
  - Alopecia [Not Recovered/Not Resolved]

NARRATIVE: CASE EVENT DATE: 20171029
